FAERS Safety Report 22048515 (Version 1)
Quarter: 2023Q1

REPORT INFORMATION
  Report Type: Spontaneous
  Country: US (occurrence: US)
  Receive Date: 20230301
  Receipt Date: 20230301
  Transmission Date: 20230418
  Serious: Yes (Death, Other)
  Sender: FDA-Public Use
  Company Number: US-GLAXOSMITHKLINE-US2023031747

PATIENT

DRUGS (1)
  1. ADVAIR DISKUS [Suspect]
     Active Substance: FLUTICASONE PROPIONATE\SALMETEROL XINAFOATE
     Indication: Chronic obstructive pulmonary disease
     Dosage: 1 PUFF(S), BID 100/50MCG USE 1 INHALATION BY MOUTH 2 TIMES A DAY
     Dates: end: 20230220

REACTIONS (1)
  - Cardiac failure congestive [Fatal]
